FAERS Safety Report 5230323-8 (Version None)
Quarter: 2007Q1

REPORT INFORMATION
  Report Type: 
  Country: None (occurrence: None)
  Receive Date: 20070206
  Receipt Date: 20070129
  Transmission Date: 20070707
  Serious: Yes (Hospitalization)
  Sender: FDA-Public Use
  Company Number: CZ-GLAXOSMITHKLINE-B0455767A

PATIENT
  Age: 25 Year
  Sex: Male

DRUGS (1)
  1. PANADOL [Suspect]
     Indication: HEADACHE
     Route: 065
     Dates: start: 20061127

REACTIONS (3)
  - HYPERSENSITIVITY [None]
  - RASH [None]
  - URTICARIA [None]
